FAERS Safety Report 8200769 (Version 2)
Quarter: 2013Q4

REPORT INFORMATION
  Report Type: Spontaneous
  Country: US (occurrence: US)
  Receive Date: 20111026
  Receipt Date: 20131125
  Transmission Date: 20140711
  Serious: Yes (Hospitalization)
  Sender: FDA-Public Use
  Company Number: US-JNJFOC-20111009725

PATIENT
  Sex: Female
  Weight: 111.59 kg

DRUGS (6)
  1. DURAGESIC [Suspect]
     Indication: NECK PAIN
     Route: 062
     Dates: start: 2003
  2. DURAGESIC [Suspect]
     Indication: BACK PAIN
     Route: 062
     Dates: start: 2003
  3. DURAGESIC MATRIX [Suspect]
     Indication: NECK PAIN
     Route: 062
  4. DURAGESIC MATRIX [Suspect]
     Indication: BACK PAIN
     Route: 062
  5. DILAUDID [Suspect]
     Indication: PAIN
     Dosage: EVERY 4-6 HOURS AS NECESSARY
     Route: 048
     Dates: end: 2008
  6. SOMA [Concomitant]
     Indication: PRODUCT USED FOR UNKNOWN INDICATION
     Dosage: EVERY 4-6 HOURS AS NECESSARY
     Route: 065

REACTIONS (5)
  - Gastrointestinal obstruction [Recovered/Resolved]
  - Drug administered at inappropriate site [Not Recovered/Not Resolved]
  - Wrong technique in drug usage process [Not Recovered/Not Resolved]
  - Wrong technique in drug usage process [Not Recovered/Not Resolved]
  - Product quality issue [Unknown]
